FAERS Safety Report 6045427-X (Version None)
Quarter: 2009Q1

REPORT INFORMATION
  Report Type: 
  Country: None (occurrence: None)
  Receive Date: 20090116
  Receipt Date: 20090116
  Transmission Date: 20090719
  Serious: Yes (Hospitalization)
  Sender: FDA-Public Use
  Company Number: None

PATIENT
  Age: 35 Year
  Sex: Female
  Weight: 54.4316 kg

DRUGS (1)
  1. MIRENA [Suspect]
     Indication: CONTRACEPTION
     Dosage: 1 VAG
     Route: 067
     Dates: start: 20070801, end: 20081028

REACTIONS (27)
  - ABDOMINAL PAIN UPPER [None]
  - AMNESIA [None]
  - ANOREXIA [None]
  - ANXIETY [None]
  - BLOOD OESTROGEN INCREASED [None]
  - BREAST PAIN [None]
  - CARPAL TUNNEL SYNDROME [None]
  - DIZZINESS [None]
  - DYSPEPSIA [None]
  - DYSPNOEA [None]
  - FEELING ABNORMAL [None]
  - GASTRIC DISORDER [None]
  - GASTROINTESTINAL DISORDER [None]
  - GASTROOESOPHAGEAL REFLUX DISEASE [None]
  - HORMONE LEVEL ABNORMAL [None]
  - IRRITABILITY [None]
  - IUCD COMPLICATION [None]
  - MUSCULOSKELETAL CHEST PAIN [None]
  - NAUSEA [None]
  - PAIN [None]
  - PALPITATIONS [None]
  - PANIC ATTACK [None]
  - PRURITUS [None]
  - SENSATION OF FOREIGN BODY [None]
  - THROAT TIGHTNESS [None]
  - TREMOR [None]
  - WEIGHT DECREASED [None]
